FAERS Safety Report 17029519 (Version 3)
Quarter: 2019Q4

REPORT INFORMATION
  Report Type: Spontaneous
  Country: US (occurrence: US)
  Receive Date: 20191114
  Receipt Date: 20191129
  Transmission Date: 20200122
  Serious: Yes (Hospitalization, Other)
  Sender: FDA-Public Use
  Company Number: US-AMGEN-USASP2019186064

PATIENT
  Age: 22 Year
  Sex: Female
  Weight: 51 kg

DRUGS (5)
  1. SPRYCEL [Concomitant]
     Active Substance: DASATINIB
     Indication: ACUTE LYMPHOCYTIC LEUKAEMIA RECURRENT
     Dosage: 140 MILLIGRAM, QD
  2. LYRICA [Concomitant]
     Active Substance: PREGABALIN
     Indication: NEUROPATHY PERIPHERAL
     Dosage: 50 MILLIGRAM, BID
  3. BLINCYTO [Suspect]
     Active Substance: BLINATUMOMAB
     Dosage: 28 MICROGRAM, QD
     Route: 042
     Dates: start: 2019
  4. BLINCYTO [Suspect]
     Active Substance: BLINATUMOMAB
     Indication: ACUTE LYMPHOCYTIC LEUKAEMIA RECURRENT
     Dosage: 28 MICROGRAM, QD
     Route: 042
     Dates: start: 20190805, end: 20190807
  5. BLINCYTO [Suspect]
     Active Substance: BLINATUMOMAB
     Dosage: 09 MICROGRAM, QD FOR 7 DAYS
     Route: 042
     Dates: start: 20190813

REACTIONS (4)
  - Disorientation [Recovered/Resolved]
  - Tremor [Recovered/Resolved]
  - Myoclonus [Recovered/Resolved]
  - Cytokine release syndrome [Recovered/Resolved]

NARRATIVE: CASE EVENT DATE: 20190807
